FAERS Safety Report 11895223 (Version 2)
Quarter: 2016Q1

REPORT INFORMATION
  Report Type: Spontaneous
  Country: US (occurrence: US)
  Receive Date: 20160107
  Receipt Date: 20160323
  Transmission Date: 20160526
  Serious: Yes (Hospitalization, Other)
  Sender: FDA-Public Use
  Company Number: US-PFIZER INC-2016002171

PATIENT
  Age: 53 Year
  Sex: Male

DRUGS (3)
  1. DEPO-TESTOSTERONE [Suspect]
     Active Substance: TESTOSTERONE CYPIONATE
     Indication: HORMONE REPLACEMENT THERAPY
     Dosage: 1 ML (ONE CUBIC CENTIMETER SHOT), MONTHLY (PER MONTH)
     Route: 030
     Dates: start: 200006, end: 201407
  2. TESTOSTERONE CIPIONATE [Suspect]
     Active Substance: TESTOSTERONE
     Indication: HORMONE REPLACEMENT THERAPY
     Dosage: 1 ML (ONE CUBIC CENTIMETER SHOT), MONTHLY (PER MONTH)
     Route: 030
     Dates: start: 2000, end: 2014
  3. LIPITOR [Concomitant]
     Active Substance: ATORVASTATIN CALCIUM
     Indication: BLOOD CHOLESTEROL INCREASED
     Dosage: 80 MG, UNK
     Dates: start: 1999

REACTIONS (5)
  - Dyspepsia [Unknown]
  - Anxiety [Not Recovered/Not Resolved]
  - Myocardial infarction [Unknown]
  - Deep vein thrombosis [Unknown]
  - Amnesia [Not Recovered/Not Resolved]

NARRATIVE: CASE EVENT DATE: 20110310
